FAERS Safety Report 4603510-7 (Version None)
Quarter: 2005Q1

REPORT INFORMATION
  Report Type: 
  Country: None (occurrence: None)
  Receive Date: 20050214
  Receipt Date: 20041124
  Transmission Date: 20050727
  Serious: No
  Sender: FDA-Public Use
  Company Number: USA041184626

PATIENT
  Age: 68 Year
  Sex: Male

DRUGS (2)
  1. CIALIS [Suspect]
     Indication: ERECTILE DYSFUNCTION
     Dosage: 10 MG
     Dates: start: 20041123
  2. NEXIUM (ESOMEPRAZOLE SODIUM)C [Concomitant]

REACTIONS (1)
  - DRUG INEFFECTIVE [None]
